FAERS Safety Report 16804085 (Version 3)
Quarter: 2019Q4

REPORT INFORMATION
  Report Type: Report from Study
  Country: US (occurrence: US)
  Receive Date: 20190913
  Receipt Date: 20191208
  Transmission Date: 20200122
  Serious: No
  Sender: FDA-Public Use
  Company Number: PHEH2019US037964

PATIENT
  Sex: Female

DRUGS (2)
  1. AUBAGIO [Suspect]
     Active Substance: TERIFLUNOMIDE
     Indication: PRODUCT USED FOR UNKNOWN INDICATION
     Route: 065
  2. GILENYA [Suspect]
     Active Substance: FINGOLIMOD HYDROCHLORIDE
     Indication: MULTIPLE SCLEROSIS
     Dosage: 0.5 MG, QD
     Route: 048
     Dates: start: 2018, end: 20190901

REACTIONS (7)
  - White blood cell count decreased [Unknown]
  - Diarrhoea [Unknown]
  - Alopecia [Unknown]
  - Nausea [Unknown]
  - Pain in extremity [Unknown]
  - Fatigue [Unknown]
  - Hypoaesthesia [Unknown]
